FAERS Safety Report 4473196-3 (Version None)
Quarter: 2004Q4

REPORT INFORMATION
  Report Type: 
  Country: None (occurrence: None)
  Receive Date: 20041008
  Receipt Date: 20040930
  Transmission Date: 20050328
  Serious: Yes (Hospitalization)
  Sender: FDA-Public Use
  Company Number: RENA-11176

PATIENT
  Age: 80 Year
  Sex: Female

DRUGS (2)
  1. PHOSBLOCK - 250 MG TABLETS [Suspect]
     Indication: HYPERPHOSPHATAEMIA
  2. CALCIUM CARBONATE [Concomitant]

REACTIONS (3)
  - FAECALOMA [None]
  - HAEMATOCHEZIA [None]
  - ILEUS [None]
